FAERS Safety Report 11422015 (Version 2)
Quarter: 2015Q4

REPORT INFORMATION
  Report Type: Report from Study
  Country: JP (occurrence: JP)
  Receive Date: 20150827
  Receipt Date: 20151015
  Transmission Date: 20160304
  Serious: Yes (Other)
  Sender: FDA-Public Use
  Company Number: JP-ASTRAZENECA-2015SE80358

PATIENT
  Age: 23321 Day
  Sex: Male

DRUGS (4)
  1. TAKEPRON [Concomitant]
     Active Substance: LANSOPRAZOLE
     Dates: start: 20150205
  2. AZD6140 [Suspect]
     Active Substance: TICAGRELOR
     Indication: CARDIOVASCULAR EVENT PROPHYLAXIS
     Dosage: 180 MG LOADING DOSE
     Route: 048
     Dates: start: 20150205, end: 20150205
  3. AZD6140 [Suspect]
     Active Substance: TICAGRELOR
     Indication: CARDIOVASCULAR EVENT PROPHYLAXIS
     Route: 048
     Dates: start: 20150205
  4. CALONAL [Concomitant]
     Active Substance: ACETAMINOPHEN
     Dates: start: 20150207

REACTIONS (1)
  - Transient ischaemic attack [Recovered/Resolved]

NARRATIVE: CASE EVENT DATE: 20150214
